FAERS Safety Report 4453468-9 (Version None)
Quarter: 2004Q3

REPORT INFORMATION
  Report Type: 
  Country: None (occurrence: None)
  Receive Date: 20040920
  Receipt Date: 20040902
  Transmission Date: 20050211
  Serious: Yes (Other)
  Sender: FDA-Public Use
  Company Number: GBWYE014603SEP04

PATIENT
  Age: 75 Year
  Sex: Female

DRUGS (5)
  1. ENBREL [Suspect]
     Indication: RHEUMATOID ARTHRITIS
     Route: 065
     Dates: start: 20040604, end: 20040803
  2. METHOTREXATE [Concomitant]
     Route: 048
     Dates: start: 20020101
  3. HYDROXYCHLOROQUINE PHOSPHATE [Concomitant]
     Dates: start: 20030101
  4. FOLIC ACID [Concomitant]
     Route: 048
     Dates: start: 20030101
  5. DEXTROPROPOXYPHENE HYDROCHLORIDE [Concomitant]
     Dosage: UNKNOWN
     Route: 048

REACTIONS (4)
  - BLISTER [None]
  - IMPAIRED HEALING [None]
  - LEUKOCYTOCLASTIC VASCULITIS [None]
  - PAIN [None]
